FAERS Safety Report 14284931 (Version 1)
Quarter: 2017Q4

REPORT INFORMATION
  Report Type: Spontaneous
  Country: US (occurrence: US)
  Receive Date: 20171214
  Receipt Date: 20171214
  Transmission Date: 20180321
  Serious: Yes (Hospitalization, Other)
  Sender: FDA-Public Use
  Company Number: PHEH2017US039119

PATIENT
  Age: 66 Year
  Sex: Female

DRUGS (6)
  1. AMPYRA [Suspect]
     Active Substance: DALFAMPRIDINE
     Indication: MULTIPLE SCLEROSIS
     Dosage: 10 MG, BID (Q12H)
     Route: 048
     Dates: start: 201007
  2. CIPROFLOXACIN. [Concomitant]
     Active Substance: CIPROFLOXACIN
     Indication: PRODUCT USED FOR UNKNOWN INDICATION
     Route: 065
  3. ANCEF [Suspect]
     Active Substance: CEFAZOLIN SODIUM
     Indication: OSTEOMYELITIS
     Dosage: UNK UNK, BID
     Route: 065
  4. DAPTOMYCIN. [Concomitant]
     Active Substance: DAPTOMYCIN
     Indication: PRODUCT USED FOR UNKNOWN INDICATION
     Route: 065
  5. CEFTRIAXONE FOR INJECTION [Suspect]
     Active Substance: CEFTRIAXONE
     Indication: OSTEOMYELITIS
     Route: 065
  6. VANCOMYCIN [Concomitant]
     Active Substance: VANCOMYCIN
     Indication: PRODUCT USED FOR UNKNOWN INDICATION
     Route: 065

REACTIONS (9)
  - Sepsis [Unknown]
  - Liver function test increased [Unknown]
  - Urinary tract infection staphylococcal [Unknown]
  - Pyrexia [Unknown]
  - Asthenia [Unknown]
  - Wound infection staphylococcal [Unknown]
  - Urinary tract infection [Unknown]
  - Osteomyelitis [Unknown]
  - Decubitus ulcer [Unknown]

NARRATIVE: CASE EVENT DATE: 20161115
